FAERS Safety Report 10182822 (Version 1)
Quarter: 2014Q2

REPORT INFORMATION
  Report Type: Spontaneous
  Country: US (occurrence: US)
  Receive Date: 20140520
  Receipt Date: 20140520
  Transmission Date: 20141212
  Serious: No
  Sender: FDA-Public Use
  Company Number: US-PFIZER INC-2014134447

PATIENT
  Sex: Female

DRUGS (4)
  1. LYRICA [Suspect]
     Dosage: UNK
     Dates: start: 20140424
  2. LYRICA [Suspect]
     Dosage: 150 MG, 2X/DAY
     Dates: start: 2014, end: 2014
  3. LYRICA [Suspect]
     Dosage: 75 MG, DAILY
     Dates: start: 2014
  4. DIAZEPAM [Concomitant]
     Dosage: UNK

REACTIONS (1)
  - Tinnitus [Unknown]
